FAERS Safety Report 10286042 (Version 1)
Quarter: 2014Q3

REPORT INFORMATION
  Report Type: Spontaneous
  Country: US (occurrence: None)
  Receive Date: 20140703
  Receipt Date: 20140703
  Transmission Date: 20150326
  Serious: Yes (Other)
  Sender: FDA-Public Use
  Company Number: None

PATIENT
  Age: 34 Year
  Sex: Male

DRUGS (1)
  1. ZYRTEC [Suspect]
     Active Substance: CETIRIZINE HYDROCHLORIDE

REACTIONS (6)
  - Drug withdrawal syndrome [None]
  - Urticaria [None]
  - Asthenia [None]
  - Pruritus [None]
  - Insomnia [None]
  - Impaired work ability [None]

NARRATIVE: CASE EVENT DATE: 20140701
